FAERS Safety Report 8164004-8 (Version None)
Quarter: 2012Q1

REPORT INFORMATION
  Report Type: 
  Country: None (occurrence: None)
  Receive Date: 20120224
  Receipt Date: 20120218
  Transmission Date: 20120608
  Serious: Yes (Other)
  Sender: FDA-Public Use
  Company Number: CHPA2012US002228

PATIENT
  Age: 17 Year
  Sex: Female

DRUGS (1)
  1. EXCEDRIN (MIGRAINE) [Suspect]
     Indication: HEADACHE
     Dosage: UNK, UNK
     Route: 048

REACTIONS (9)
  - INCORRECT DOSE ADMINISTERED [None]
  - DYSPNOEA [None]
  - URTICARIA [None]
  - BLOOD TEST ABNORMAL [None]
  - PHARYNGEAL OEDEMA [None]
  - LIP SWELLING [None]
  - DYSPHAGIA [None]
  - SWELLING FACE [None]
  - OVERDOSE [None]
